FAERS Safety Report 9198646 (Version 1)
Quarter: 2013Q1

REPORT INFORMATION
  Report Type: Spontaneous
  Country: CA (occurrence: CA)
  Receive Date: 20130329
  Receipt Date: 20130329
  Transmission Date: 20140127
  Serious: Yes (Other)
  Sender: FDA-Public Use
  Company Number: CA-JNJFOC-20120201889

PATIENT
  Age: 73 Year
  Sex: Male
  Weight: 98 kg

DRUGS (3)
  1. REMICADE [Suspect]
     Indication: COLITIS ULCERATIVE
     Route: 042
     Dates: start: 20090619, end: 20120214
  2. HYDROCORTISONE [Concomitant]
     Indication: COLITIS ULCERATIVE
     Route: 042
     Dates: start: 20090619, end: 20120214
  3. HYDROCORTISONE [Concomitant]
     Indication: PREMEDICATION
     Route: 042
     Dates: start: 20090619, end: 20120214

REACTIONS (4)
  - Pneumonia [Unknown]
  - Chills [Recovered/Resolved]
  - Infusion related reaction [Recovered/Resolved]
  - Intestinal operation [Unknown]
